FAERS Safety Report 12864831 (Version 1)
Quarter: 2016Q4

REPORT INFORMATION
  Report Type: Spontaneous
  Country: US (occurrence: US)
  Receive Date: 20161019
  Receipt Date: 20161019
  Transmission Date: 20170207
  Serious: Yes (Disabling)
  Sender: FDA-Public Use
  Company Number: None

PATIENT
  Age: 65 Year
  Sex: Female
  Weight: 83.25 kg

DRUGS (1)
  1. MAJOR EYE WASH [Suspect]
     Active Substance: WATER
     Indication: FOREIGN BODY IN EYE
     Route: 047
     Dates: start: 20160501, end: 20161010

REACTIONS (4)
  - Eye irritation [None]
  - Vision blurred [None]
  - Eye pruritus [None]
  - Therapy non-responder [None]

NARRATIVE: CASE EVENT DATE: 20160501
